FAERS Safety Report 7423092-4 (Version None)
Quarter: 2011Q2

REPORT INFORMATION
  Report Type: 
  Country: None (occurrence: None)
  Receive Date: 20110419
  Receipt Date: 20110415
  Transmission Date: 20111010
  Serious: Yes (Other)
  Sender: FDA-Public Use
  Company Number: IT-ABBOTT-11P-083-0711813-00

PATIENT
  Sex: Male

DRUGS (4)
  1. ASACOL [Concomitant]
     Indication: PRODUCT USED FOR UNKNOWN INDICATION
  2. NICOZID [Suspect]
     Indication: SERONEGATIVE ARTHRITIS
     Route: 048
     Dates: start: 20110104, end: 20110304
  3. HUMIRA [Suspect]
     Indication: SERONEGATIVE ARTHRITIS
     Dosage: CYCLIC
     Route: 058
     Dates: start: 20110110, end: 20110304
  4. SALAZOPYRIN EN [Concomitant]
     Indication: PRODUCT USED FOR UNKNOWN INDICATION

REACTIONS (2)
  - ERYTHEMA [None]
  - PRURITUS [None]
